FAERS Safety Report 10373939 (Version 1)
Quarter: 2014Q1

REPORT INFORMATION
  Report Type: Spontaneous
  Country: US (occurrence: None)
  Receive Date: 20140306
  Receipt Date: 20140306
  Transmission Date: 20141002
  Serious: Yes (Other)
  Sender: FDA-Public Use
  Company Number: 163-21880-13013722

PATIENT
  Age: 81 Year
  Sex: Female

DRUGS (16)
  1. REVLIMID (LENALIDOMIDE) (5 MILLIGRAM, CAPSULES) [Suspect]
     Indication: PLASMA CELL MYELOMA
     Route: 048
     Dates: start: 201104, end: 201111
  2. KYPROLIS (CARFILZOMIB) (UNKNOWN) [Suspect]
     Indication: PLASMA CELL MYELOMA
     Dosage: 15 MG/M2, 6 IN 28 D, UNK
     Dates: start: 20120927
  3. LEVOTHYROXINE [Concomitant]
  4. FOLIC ACID [Concomitant]
  5. OXYCODONE ER(OXYCODONE HYDROCHLORIDE) [Concomitant]
  6. ALENDRONATE WITH VITAMIN D (FOSAVANCE) [Concomitant]
  7. DESONIDE [Concomitant]
  8. CEPHALEXIN [Concomitant]
  9. CALCIUM CITRATE [Concomitant]
  10. CENTRUM SILVER [Concomitant]
  11. ACETAMINOPHEN (PARACETAMOL) [Concomitant]
  12. AMITRIPTYLINE [Concomitant]
  13. AMOXICILLIN/CLAVULANATE [Concomitant]
  14. ZOMETA (ZOLEDRONIC ACID) [Concomitant]
  15. STEROID (STEROID ANTIBACTERIALS) [Concomitant]
  16. LAXATIVE (SENNOSIDE A+B) [Concomitant]

REACTIONS (4)
  - Deep vein thrombosis [None]
  - Rash erythematous [None]
  - Rash pruritic [None]
  - Neuropathy peripheral [None]
